FAERS Safety Report 8734408 (Version 3)
Quarter: 2012Q4

REPORT INFORMATION
  Report Type: 
  Country: US (occurrence: US)
  Receive Date: 20120821
  Receipt Date: 20121105
  Transmission Date: 20130627
  Serious: Yes (Death, Disabling)
  Sender: FDA-Public Use
  Company Number: US-CELGENEUS-163-21880-12081982

PATIENT
  Sex: Male

DRUGS (3)
  1. REVLIMID [Suspect]
     Indication: MULTIPLE MYELOMA
     Dosage: 10 Milligram
     Route: 048
     Dates: start: 20081020, end: 2008
  2. REVLIMID [Suspect]
     Indication: LUNG CANCER
     Dosage: 15 Milligram
     Route: 048
     Dates: start: 200812
  3. REVLIMID [Suspect]
     Dosage: 10 Milligram
     Route: 048
     Dates: start: 201107, end: 201208

REACTIONS (2)
  - Lung cancer metastatic [Fatal]
  - Plasma cell myeloma [Unknown]
